FAERS Safety Report 4348547-0 (Version None)
Quarter: 2004Q2

REPORT INFORMATION
  Report Type: 
  Country: None (occurrence: None)
  Receive Date: 20040422
  Receipt Date: 20040409
  Transmission Date: 20050107
  Serious: Yes (Hospitalization)
  Sender: FDA-Public Use
  Company Number: 04P-129-0256620-00

PATIENT
  Age: 47 Year
  Sex: Female

DRUGS (1)
  1. ISOPTIN [Suspect]
     Indication: SUICIDE ATTEMPT
     Dosage: 1600 MG, ONCE

REACTIONS (7)
  - CARDIOGENIC SHOCK [None]
  - DRUG INEFFECTIVE [None]
  - DRUG TOXICITY [None]
  - HYPOTENSION [None]
  - OVERDOSE [None]
  - SHOCK [None]
  - SUICIDE ATTEMPT [None]
